FAERS Safety Report 5891429-3 (Version None)
Quarter: 2008Q3

REPORT INFORMATION
  Report Type: 
  Country: None (occurrence: None)
  Receive Date: 20080918
  Receipt Date: 20080918
  Transmission Date: 20090109
  Serious: Yes (Other)
  Sender: FDA-Public Use
  Company Number: None

PATIENT
  Age: 7 Month
  Sex: Female

DRUGS (1)
  1. MUSTELA HIGH PROTECTION SUN LOTION [Suspect]
     Dates: start: 20080801, end: 20080801

REACTIONS (1)
  - SKIN DISCOLOURATION [None]
